APPROVED DRUG PRODUCT: POTASSIUM ACETATE
Active Ingredient: POTASSIUM ACETATE
Strength: 2MEQ/ML
Dosage Form/Route: INJECTABLE;INJECTION
Application: A212692 | Product #001 | TE Code: AP
Applicant: EXELA PHARMA SCIENCES LLC
Approved: Oct 20, 2021 | RLD: No | RS: No | Type: RX